FAERS Safety Report 24040994 (Version 1)
Quarter: 2024Q3

REPORT INFORMATION
  Report Type: Spontaneous
  Country: US (occurrence: None)
  Receive Date: 20240701
  Receipt Date: 20240701
  Transmission Date: 20241016
  Serious: Yes (Other)
  Sender: Public
  Company Number: None

PATIENT
  Age: 64 Year
  Sex: Female

DRUGS (3)
  1. PROLIA [Suspect]
     Active Substance: DENOSUMAB
     Indication: Osteoporosis
     Route: 030
     Dates: start: 20240516, end: 20240516
  2. BIOTIN [Concomitant]
     Active Substance: BIOTIN
  3. ALIGN [Concomitant]
     Active Substance: BIFIDOBACTERIUM LONGUM SUBSP. INFANTIS

REACTIONS (4)
  - Musculoskeletal stiffness [None]
  - Arthralgia [None]
  - Neuralgia [None]
  - Headache [None]

NARRATIVE: CASE EVENT DATE: 20240523
